FAERS Safety Report 4958075-7 (Version None)
Quarter: 2006Q1

REPORT INFORMATION
  Report Type: 
  Country: None (occurrence: None)
  Receive Date: 20060330
  Receipt Date: 20060209
  Transmission Date: 20060701
  Serious: Yes (Hospitalization, Other)
  Sender: FDA-Public Use
  Company Number: US-MERCK-0602USA02506

PATIENT
  Age: 68 Year
  Sex: Female
  Weight: 73 kg

DRUGS (8)
  1. VIOXX [Suspect]
     Indication: POLYMYALGIA RHEUMATICA
     Route: 048
     Dates: start: 19991201, end: 20041001
  2. FOSAMAX [Concomitant]
     Route: 065
  3. NORVASC [Concomitant]
     Route: 065
  4. PREDNISONA SOD. FOS [Concomitant]
     Route: 065
  5. NEURONTIN [Concomitant]
     Route: 065
  6. TRUSOPT [Concomitant]
     Route: 065
  7. LUMIGAN [Concomitant]
     Route: 065
  8. HUMULIN [Concomitant]
     Route: 065

REACTIONS (5)
  - CARDIAC DISORDER [None]
  - MYOCARDIAL INFARCTION [None]
  - PNEUMONIA [None]
  - POLYMYALGIA RHEUMATICA [None]
  - TRANSIENT ISCHAEMIC ATTACK [None]
